FAERS Safety Report 21283483 (Version 5)
Quarter: 2022Q4

REPORT INFORMATION
  Report Type: Report from Study
  Country: JP (occurrence: JP)
  Receive Date: 20220901
  Receipt Date: 20221205
  Transmission Date: 20230112
  Serious: Yes (Hospitalization, Other)
  Sender: FDA-Public Use
  Company Number: JP-BRISTOL-MYERS SQUIBB COMPANY-2022-097040

PATIENT
  Age: 79 Year
  Sex: Male
  Weight: 61 kg

DRUGS (13)
  1. LISOCABTAGENE MARALEUCEL [Suspect]
     Active Substance: LISOCABTAGENE MARALEUCEL
     Indication: Follicular lymphoma
     Dosage: 100 X 10^6 CAR+ T CELLS?FREQUENCY: ONCE (SINGLE ENTIRE DOSE)
     Route: 042
     Dates: start: 20211115, end: 20211115
  2. FLUDARABINE [Concomitant]
     Active Substance: FLUDARABINE PHOSPHATE
     Indication: Follicular lymphoma
     Dosage: 30 MG
     Route: 042
     Dates: start: 20211110, end: 20211112
  3. CYCLOPHOSPHAMIDE [Concomitant]
     Active Substance: CYCLOPHOSPHAMIDE
     Indication: Follicular lymphoma
     Dosage: 500 MG
     Route: 042
     Dates: start: 20211110, end: 20211112
  4. ACYCLOVIR [Concomitant]
     Active Substance: ACYCLOVIR
     Indication: Antiviral prophylaxis
     Dosage: 200 MG
     Route: 048
     Dates: start: 20211111
  5. AZULENE [Concomitant]
     Active Substance: AZULENE
     Indication: Prophylaxis
     Dosage: DOSE: APPROPRIATE AMOUNT?UNIT: ML ?APPROPRIATE AMOUNT ML?ROUTE: ORAL GAVAGE?FREQUENCY: PRN
     Route: 048
     Dates: start: 20211201
  6. PENTAMIDINE [Concomitant]
     Active Substance: PENTAMIDINE
     Indication: Antifungal prophylaxis
     Dosage: 300 MG
     Route: 055
     Dates: start: 20211014
  7. DIFLUCAN [Concomitant]
     Active Substance: FLUCONAZOLE
     Indication: Prophylaxis
     Dosage: 100 MG
     Route: 048
     Dates: start: 20211222
  8. FEBUXOSTAT [Concomitant]
     Active Substance: FEBUXOSTAT
     Indication: Hyperuricaemia
     Dosage: 10 MG
     Route: 048
     Dates: start: 20211007
  9. HEPARINOID [Concomitant]
     Indication: Prophylaxis
     Dosage: DOSE: APPROPRIATE AMOUNT?UNIT: ML ?APPROPRIATE AMOUNT ML
     Route: 061
     Dates: start: 20211205
  10. MAGNESIUM OXIDE [Concomitant]
     Active Substance: MAGNESIUM OXIDE
     Indication: Constipation
     Dosage: 330 MG?FREQUENCY: PRN
     Route: 048
     Dates: start: 20190305
  11. SULTANOL [Concomitant]
     Active Substance: ALBUTEROL SULFATE
     Indication: Premedication
     Dosage: DOSE: 2?2 PUFF
     Route: 055
     Dates: start: 20211014
  12. VONOPRAZAN FUMARATE [Concomitant]
     Active Substance: VONOPRAZAN FUMARATE
     Indication: Prophylaxis
     Dosage: 20 MG
     Route: 048
     Dates: start: 20211112
  13. VEMLIDY [Concomitant]
     Active Substance: TENOFOVIR ALAFENAMIDE FUMARATE
     Indication: Prophylaxis
     Dosage: 25 MG
     Route: 048
     Dates: start: 20211112

REACTIONS (1)
  - COVID-19 pneumonia [Recovered/Resolved]

NARRATIVE: CASE EVENT DATE: 20220821
